FAERS Safety Report 15170030 (Version 2)
Quarter: 2018Q3

REPORT INFORMATION
  Report Type: Spontaneous
  Country: US (occurrence: US)
  Receive Date: 20180720
  Receipt Date: 20180723
  Transmission Date: 20181010
  Serious: No
  Sender: FDA-Public Use
  Company Number: US-PFIZER INC-2018291613

PATIENT
  Age: 50 Year
  Sex: Female

DRUGS (1)
  1. SERTRALINE HCL [Suspect]
     Active Substance: SERTRALINE HYDROCHLORIDE
     Dosage: 75 MG, (50 MG OF THE GENERIC AND HALF OF A TABLET OF THE GENERIC TO EQUAL 75 MG), UNK

REACTIONS (1)
  - Headache [Unknown]
